FAERS Safety Report 19855350 (Version 1)
Quarter: 2021Q3

REPORT INFORMATION
  Report Type: Spontaneous
  Country: IT (occurrence: IT)
  Receive Date: 20210920
  Receipt Date: 20210920
  Transmission Date: 20211014
  Serious: Yes (Other)
  Sender: FDA-Public Use
  Company Number: IT-ROCHE-2907715

PATIENT
  Age: 67 Year
  Sex: Male
  Weight: 109 kg

DRUGS (11)
  1. ROACTEMRA [Suspect]
     Active Substance: TOCILIZUMAB
     Indication: BEHCET^S SYNDROME
     Route: 058
     Dates: start: 20150219, end: 20200212
  2. ZYLORIC [Concomitant]
     Active Substance: ALLOPURINOL
     Indication: HYPERURICAEMIA
     Route: 048
     Dates: start: 20100318
  3. NORMIX [Concomitant]
     Active Substance: RIFAXIMIN
     Dates: start: 20161103
  4. XARELTO [Concomitant]
     Active Substance: RIVAROXABAN
     Indication: ATRIAL FIBRILLATION
     Route: 048
     Dates: start: 20170714
  5. DIBASE [Concomitant]
     Active Substance: CHOLECALCIFEROL
     Indication: VITAMIN D DEFICIENCY
     Route: 048
     Dates: start: 20161230
  6. DEXTRADOL [Concomitant]
     Indication: BEHCET^S SYNDROME
     Route: 048
     Dates: start: 20181024
  7. SOTALOL. [Concomitant]
     Active Substance: SOTALOL
     Indication: ATRIAL FIBRILLATION
     Route: 048
     Dates: start: 20130325
  8. CLASTEON [Concomitant]
     Indication: OSTEOPENIA
     Route: 030
     Dates: start: 20191115
  9. PREDNISONE. [Concomitant]
     Active Substance: PREDNISONE
     Indication: BEHCET^S SYNDROME
     Route: 048
     Dates: start: 20200212
  10. OMEPRAZOLE. [Concomitant]
     Active Substance: OMEPRAZOLE
     Indication: PROPHYLAXIS AGAINST GASTROINTESTINAL ULCER
     Route: 048
     Dates: start: 20130325
  11. ICOMB [Concomitant]
     Indication: HYPERTENSION
     Route: 048
     Dates: start: 20170208

REACTIONS (4)
  - Therapeutic product effect decreased [Unknown]
  - Uveitis [Unknown]
  - Birdshot chorioretinopathy [Unknown]
  - Arthralgia [Unknown]

NARRATIVE: CASE EVENT DATE: 20200212
